FAERS Safety Report 12168159 (Version 2)
Quarter: 2016Q1

REPORT INFORMATION
  Report Type: Report from Study
  Country: US (occurrence: US)
  Receive Date: 20160310
  Receipt Date: 20160323
  Transmission Date: 20160526
  Serious: Yes (Hospitalization, Other)
  Sender: FDA-Public Use
  Company Number: US-JNJFOC-20160309619

PATIENT
  Age: 91 Year
  Sex: Male

DRUGS (6)
  1. AMLODIPINE BESILATE W/BENAZEPRIL [Concomitant]
  2. IMBRUVICA [Suspect]
     Active Substance: IBRUTINIB
     Indication: LYMPHOCYTIC LEUKAEMIA
     Route: 048
     Dates: start: 20160225, end: 2016
  3. OMEPRAZOLE. [Concomitant]
     Active Substance: OMEPRAZOLE
  4. SIMVASTATIN. [Concomitant]
     Active Substance: SIMVASTATIN
  5. SINGULAIR [Concomitant]
     Active Substance: MONTELUKAST SODIUM
  6. VITAMIN D [Concomitant]
     Active Substance: CHOLECALCIFEROL

REACTIONS (10)
  - Haemorrhage [Recovering/Resolving]
  - Mental disorder [Unknown]
  - Contusion [Unknown]
  - Haematoma [Unknown]
  - Peripheral swelling [Unknown]
  - Off label use [Unknown]
  - Periarthritis [Recovering/Resolving]
  - Cardiac failure [Unknown]
  - Oedema [Unknown]
  - Mobility decreased [Unknown]

NARRATIVE: CASE EVENT DATE: 2016
